FAERS Safety Report 13234489 (Version 1)
Quarter: 2017Q1

REPORT INFORMATION
  Report Type: Spontaneous
  Country: FR (occurrence: FR)
  Receive Date: 20170215
  Receipt Date: 20170215
  Transmission Date: 20170428
  Serious: Yes (Other)
  Sender: FDA-Public Use
  Company Number: FR-JNJFOC-20170209300

PATIENT
  Age: 52 Year
  Sex: Female

DRUGS (1)
  1. YONDELIS [Suspect]
     Active Substance: TRABECTEDIN
     Indication: SPINDLE CELL SARCOMA
     Dosage: CYCLE 4, INFUSION OVER 24 HOURS IN 500 ML
     Route: 042
     Dates: start: 20161219, end: 20161220

REACTIONS (2)
  - Extravasation [Recovered/Resolved]
  - Injection site erythema [Recovering/Resolving]

NARRATIVE: CASE EVENT DATE: 20161220
